FAERS Safety Report 20070463 (Version 3)
Quarter: 2022Q1

REPORT INFORMATION
  Report Type: Spontaneous
  Country: ES (occurrence: ES)
  Receive Date: 20211115
  Receipt Date: 20220211
  Transmission Date: 20220424
  Serious: Yes (Disabling, Other)
  Sender: FDA-Public Use
  Company Number: ES-NOVARTISPH-NVSC2021ES203091

PATIENT
  Age: 71 Year
  Sex: Female
  Weight: 59 kg

DRUGS (9)
  1. ACETAMINOPHEN [Suspect]
     Active Substance: ACETAMINOPHEN
     Indication: Pain
     Dosage: EVERY 8 HOURS (UPON FU: TAKING WHEN THERE IS PAIN)
     Route: 065
     Dates: start: 20210801
  2. LORAZEPAM [Suspect]
     Active Substance: LORAZEPAM
     Indication: Sleep disorder
     Dosage: DAILY 1/2 TABLET
     Route: 065
  3. LORAZEPAM [Suspect]
     Active Substance: LORAZEPAM
     Dosage: ? OR 1 TABLET AT NIGHT, YEARS
     Route: 048
  4. LORAZEPAM [Suspect]
     Active Substance: LORAZEPAM
     Dosage: ? OR 1 TABLET AT NIGHT, YEARS
     Route: 048
  5. DEXKETOPROFEN TROMETAMOL [Suspect]
     Active Substance: DEXKETOPROFEN TROMETAMOL
     Indication: Pain
     Dosage: UNK
     Route: 048
     Dates: start: 20210729
  6. DEXKETOPROFEN TROMETAMOL [Suspect]
     Active Substance: DEXKETOPROFEN TROMETAMOL
     Dosage: IF THERE^S PAIN
     Route: 048
     Dates: start: 20210801, end: 20210804
  7. FENTANYL [Suspect]
     Active Substance: FENTANYL
     Indication: Pain
     Dosage: STARTED 3-4 WEEKS AGO AND SHE CONTINUES; 1 PATCH EVERY 3 WEEKS
     Route: 062
     Dates: start: 202108
  8. TRAMADOL HYDROCHLORIDE [Concomitant]
     Active Substance: TRAMADOL HYDROCHLORIDE
     Indication: Pain
     Dosage: 150 MG, QD (1 TABLET), 6 YEARS
     Route: 048
  9. CALCIUM CARBONATE\CHOLECALCIFEROL [Concomitant]
     Active Substance: CALCIUM CARBONATE\CHOLECALCIFEROL
     Indication: Osteoporosis
     Dosage: UNK UNK, QD, (YEARS 1500 MG/ 400 IU)
     Route: 048

REACTIONS (15)
  - Gait inability [Not Recovered/Not Resolved]
  - Fall [Unknown]
  - Spinal fracture [Unknown]
  - Spinal fracture [Unknown]
  - Gait inability [Not Recovered/Not Resolved]
  - Neck pain [Not Recovered/Not Resolved]
  - Neck pain [Not Recovered/Not Resolved]
  - Arthralgia [Not Recovered/Not Resolved]
  - Pain [Not Recovered/Not Resolved]
  - Back pain [Not Recovered/Not Resolved]
  - Back pain [Not Recovered/Not Resolved]
  - Back pain [Not Recovered/Not Resolved]
  - Product dose omission issue [Unknown]
  - Product storage error [Unknown]
  - Device use issue [Unknown]

NARRATIVE: CASE EVENT DATE: 20210629
